FAERS Safety Report 21921455 (Version 1)
Quarter: 2023Q1

REPORT INFORMATION
  Report Type: Report from Study
  Country: GB (occurrence: None)
  Receive Date: 20230127
  Receipt Date: 20230127
  Transmission Date: 20230417
  Serious: Yes (Other)
  Sender: FDA-Public Use
  Company Number: GB-Merck Healthcare KGaA-9379495

PATIENT
  Sex: Female

DRUGS (4)
  1. MAVENCLAD [Suspect]
     Active Substance: CLADRIBINE
     Indication: Multiple sclerosis
     Dosage: YEAR ONE WEEK ONE THERAPY: TWO TABLETS ON DAYS 1 TO 3 AND ONE TABLET ON DAYS 4 AND 5
     Route: 048
     Dates: start: 20200713
  2. MAVENCLAD [Suspect]
     Active Substance: CLADRIBINE
     Dosage: YEAR ONE WEEK TWO THERAPY: TWO TABLETS ON DAYS 1 AND 2 AND ONE TABLET ON DAYS 3 TO 5
     Route: 048
  3. MAVENCLAD [Suspect]
     Active Substance: CLADRIBINE
     Dosage: YEAR TWO WEEK ONE THERAPY: TWO TABLETS ON DAYS 1 AND 2 AND ONE TABLET ON DAYS 3 TO 5
     Route: 048
  4. MAVENCLAD [Suspect]
     Active Substance: CLADRIBINE
     Dosage: YEAR TWO WEEK TWO THERAPY: TWO TABLETS ON DAYS 1 AND 2 AND ONE TABLET ON DAYS 3 TO 5
     Route: 048
     Dates: end: 202108

REACTIONS (1)
  - Hernia [Unknown]
